FAERS Safety Report 12542759 (Version 1)
Quarter: 2016Q3

REPORT INFORMATION
  Report Type: Report from Study
  Country: US (occurrence: US)
  Receive Date: 20160709
  Receipt Date: 20160709
  Transmission Date: 20161109
  Serious: Yes (Hospitalization, Other)
  Sender: FDA-Public Use
  Company Number: US-BRISTOL-MYERS SQUIBB COMPANY-BMS-2016-055604

PATIENT
  Age: 79 Year
  Sex: Male
  Weight: 87.2 kg

DRUGS (4)
  1. IPILIMUMAB [Suspect]
     Active Substance: IPILIMUMAB
     Indication: MALIGNANT MELANOMA
     Dosage: 3 MG/KG, UNK, 251 MG
     Route: 042
     Dates: start: 20160203
  2. NIVOLUMAB [Suspect]
     Active Substance: NIVOLUMAB
     Dosage: 1 MG/KG, UNK
     Route: 042
     Dates: start: 20160203
  3. NIVOLUMAB [Suspect]
     Active Substance: NIVOLUMAB
     Indication: MALIGNANT MELANOMA
     Dosage: 3 MG/KG, UNK, 84 MG
     Route: 042
     Dates: start: 20160203
  4. GM-CSF [Suspect]
     Active Substance: GRANULOCYTE-MACROPHAGE COLONY-STIMULATING FACTOR
     Indication: MALIGNANT MELANOMA
     Dosage: 2250 ?G, UNK
     Route: 058
     Dates: start: 20160203

REACTIONS (5)
  - Cough [Recovering/Resolving]
  - Fatigue [Unknown]
  - Hypotension [Recovering/Resolving]
  - Dyspnoea [Recovering/Resolving]
  - Dehydration [Recovering/Resolving]

NARRATIVE: CASE EVENT DATE: 20160610
